FAERS Safety Report 8959602 (Version 1)
Quarter: 2012Q4

REPORT INFORMATION
  Report Type: 
  Country: MX (occurrence: MX)
  Receive Date: 20121211
  Receipt Date: 20121211
  Transmission Date: 20130627
  Serious: Yes (Hospitalization)
  Sender: FDA-Public Use
  Company Number: PHHY2012MX113780

PATIENT
  Age: 83 Year
  Sex: Female

DRUGS (1)
  1. CO-DIOVAN [Suspect]
     Indication: HYPERTENSION
     Dosage: 0.5 DF (160/12.5mg) daily
     Route: 048
     Dates: start: 2008

REACTIONS (5)
  - Inguinal hernia [Recovered/Resolved]
  - Gastrointestinal inflammation [Recovered/Resolved]
  - Abdominal pain upper [Recovered/Resolved]
  - Blood pressure inadequately controlled [Unknown]
  - Wrong technique in drug usage process [Unknown]
